FAERS Safety Report 5674476-6 (Version None)
Quarter: 2008Q2

REPORT INFORMATION
  Report Type: 
  Country: None (occurrence: None)
  Receive Date: 20080303
  Receipt Date: 20070330
  Transmission Date: 20081010
  Serious: Yes (Other)
  Sender: FDA-Public Use
  Company Number: MK-6031855

PATIENT
  Age: 16 Year
  Sex: Female

DRUGS (3)
  1. AMNESTEEM [Suspect]
     Indication: ACNE
     Dosage: 20 MG;DAILY;ORAL ; 40 MG;TWICE A DAY;ORAL
     Route: 048
     Dates: start: 20061201, end: 20070101
  2. AMNESTEEM [Suspect]
     Indication: ACNE
     Dosage: 20 MG;DAILY;ORAL ; 40 MG;TWICE A DAY;ORAL
     Route: 048
     Dates: start: 20070101, end: 20070222
  3. DROSPIRENONE W/ETHINYLESTRADIOL [Concomitant]

REACTIONS (1)
  - BLOOD TRIGLYCERIDES INCREASED [None]
